FAERS Safety Report 19964945 (Version 6)
Quarter: 2022Q3

REPORT INFORMATION
  Report Type: Report from Study
  Country: US (occurrence: US)
  Receive Date: 20211018
  Receipt Date: 20220920
  Transmission Date: 20221027
  Serious: Yes (Other)
  Sender: FDA-Public Use
  Company Number: US-TAKEDA-2020TUS053094

PATIENT
  Age: 57 Year
  Sex: Female

DRUGS (2)
  1. HUMAN IMMUNOGLOBULIN G\HYALURONIDASE RECOMBINANT HUMAN [Suspect]
     Active Substance: HUMAN IMMUNOGLOBULIN G\HYALURONIDASE RECOMBINANT HUMAN
     Indication: Primary immunodeficiency syndrome
     Dosage: 10 GRAM
     Route: 065
  2. HUMAN IMMUNOGLOBULIN G\HYALURONIDASE RECOMBINANT HUMAN [Suspect]
     Active Substance: HUMAN IMMUNOGLOBULIN G\HYALURONIDASE RECOMBINANT HUMAN
     Indication: Immunodeficiency common variable
     Dosage: 14 GRAM, 1/WEEK
     Route: 065

REACTIONS (19)
  - Movement disorder [Unknown]
  - Post procedural cellulitis [Unknown]
  - Renal impairment [Unknown]
  - Infection [Unknown]
  - Migraine [Unknown]
  - Sleep disorder [Unknown]
  - Nasopharyngitis [Unknown]
  - Blood immunoglobulin G decreased [Unknown]
  - Bronchitis [Recovering/Resolving]
  - Ehlers-Danlos syndrome [Unknown]
  - Arthritis [Unknown]
  - Ligament sprain [Unknown]
  - Calcinosis [Unknown]
  - Contusion [Unknown]
  - Gait disturbance [Unknown]
  - Trigger finger [Unknown]
  - Fatigue [Unknown]
  - Immunoglobulins decreased [Unknown]
  - Back pain [Unknown]

NARRATIVE: CASE EVENT DATE: 20220307
